FAERS Safety Report 5115243-1 (Version None)
Quarter: 2006Q3

REPORT INFORMATION
  Report Type: 
  Country: None (occurrence: None)
  Receive Date: 20060922
  Receipt Date: 20060912
  Transmission Date: 20061208
  Serious: Yes (Other)
  Sender: FDA-Public Use
  Company Number: 2006RR-03693

PATIENT
  Age: 80 Year
  Sex: Male

DRUGS (2)
  1. METFORMIN HYDROCHLORIDE [Suspect]
     Dosage: ORAL
     Route: 048
  2. AVANDAMET [Suspect]
     Dosage: ORAL
     Route: 048

REACTIONS (1)
  - CARDIAC FAILURE [None]
